FAERS Safety Report 24306277 (Version 1)
Quarter: 2024Q3

REPORT INFORMATION
  Report Type: Spontaneous
  Country: US (occurrence: US)
  Receive Date: 20240911
  Receipt Date: 20240911
  Transmission Date: 20241017
  Serious: Yes (Other)
  Sender: AMGEN
  Company Number: US-AMGEN-USASP2024177512

PATIENT

DRUGS (1)
  1. RAYOS [Suspect]
     Active Substance: PREDNISONE
     Indication: Product used for unknown indication
     Dosage: UNK
     Route: 065

REACTIONS (10)
  - Diabetes mellitus [Unknown]
  - Graves^ disease [Unknown]
  - Neoplasm malignant [Unknown]
  - Immune thrombocytopenia [Unknown]
  - Endocrine ophthalmopathy [Unknown]
  - Limb injury [Not Recovered/Not Resolved]
  - Adrenal disorder [Unknown]
  - Fall [Unknown]
  - Gait disturbance [Unknown]
  - Impaired healing [Not Recovered/Not Resolved]
